FAERS Safety Report 9714889 (Version 1)
Quarter: 2013Q4

REPORT INFORMATION
  Report Type: Spontaneous
  Country: FR (occurrence: None)
  Receive Date: 20131125
  Receipt Date: 20131125
  Transmission Date: 20140711
  Serious: Yes (Hospitalization)
  Sender: FDA-Public Use
  Company Number: FK201304992

PATIENT
  Age: 75 Year
  Sex: Male

DRUGS (13)
  1. PIPERACILLIN / TAZOBACTAM [Suspect]
     Indication: LOBAR PNEUMONIA
     Dosage: 4 GRAIN, 3 IN 1 D, INTRAVENOUS
     Route: 042
     Dates: start: 20131004, end: 20131025
  2. CLINDAMYCIN [Suspect]
     Indication: SKIN ULCER
     Dosage: 600 MG , 3 IN 1 D, INTRAVENOUS (NOT OTHERWISE SPECIFIED)
     Route: 042
     Dates: start: 20131004, end: 20131025
  3. OFLOCET [Suspect]
     Indication: SKIN ULCER
     Dosage: 200 MG, 1 IN 1 D, ORAL
     Route: 048
     Dates: start: 20130918, end: 20131025
  4. TAHOR (ATORVASTATIN CALCIUM) [Concomitant]
  5. RIVOTRIL (CLONAZEPAM) [Concomitant]
  6. DAFLON (DIOSMIN) [Concomitant]
  7. PREVISCAN [Concomitant]
  8. LASILIX (FUROSEMIDE) [Concomitant]
  9. FINASTERIDE (FINASTERIDE) [Concomitant]
  10. EUPANTOL (PANTOPRAZOLE SODIUM SESQUIHYDRATE) [Concomitant]
  11. APROVEL (IRBESARTAN) [Concomitant]
  12. LYRICA (PREGABALIN) [Concomitant]
  13. MIRTAZAPINE (MIRTAZAPINE) [Concomitant]

REACTIONS (6)
  - Agranulocytosis [None]
  - Neutropenia [None]
  - Hyperthermia [None]
  - Chills [None]
  - Blood pressure diastolic decreased [None]
  - General physical health deterioration [None]
